FAERS Safety Report 4485776-X (Version None)
Quarter: 2004Q4

REPORT INFORMATION
  Report Type: 
  Country: None (occurrence: None)
  Receive Date: 20041022
  Receipt Date: 20041011
  Transmission Date: 20050328
  Serious: Yes (Death, Hospitalization)
  Sender: FDA-Public Use
  Company Number: AZAUS200400098

PATIENT
  Age: 73 Year
  Sex: Male
  Weight: 62 kg

DRUGS (8)
  1. VIDAZA [Suspect]
     Indication: MYELODYSPLASTIC SYNDROME
     Dosage: (105 MG/M2, [185 MG] ONCE DAILY X 5 DAYS), SUBCUTANEOUS
     Route: 058
     Dates: start: 20040823, end: 20040827
  2. MEGACE [Concomitant]
  3. COMPAZINE [Concomitant]
  4. ALLOPURINOL [Concomitant]
  5. TEQUIN [Concomitant]
  6. VICODIN [Concomitant]
  7. ZOLOFT (SWERTRALINE HYDROCHLORIDE) [Concomitant]
  8. RESTORIL [Concomitant]

REACTIONS (5)
  - FEBRILE NEUTROPENIA [None]
  - HAEMOGLOBIN DECREASED [None]
  - MEDICATION ERROR [None]
  - PLATELET COUNT DECREASED [None]
  - WHITE BLOOD CELL COUNT DECREASED [None]
